FAERS Safety Report 7821496-9 (Version None)
Quarter: 2011Q4

REPORT INFORMATION
  Report Type: 
  Country: None (occurrence: None)
  Receive Date: 20111018
  Receipt Date: 20110325
  Transmission Date: 20120403
  Serious: Yes (Hospitalization, Other)
  Sender: FDA-Public Use
  Company Number: PHHY2011US26137

PATIENT

DRUGS (11)
  1. VALTREX [Suspect]
     Indication: ORAL HERPES
     Dosage: UNK
  2. TEGRETOL [Suspect]
     Dosage: UNK
  3. TRAZODONE HYDROCHLORIDE [Suspect]
  4. REBIF [Suspect]
     Dosage: 44 UG, THREE TIMES PER WEEK
     Route: 058
     Dates: start: 20090101
  5. BACLOFEN [Concomitant]
     Indication: MUSCLE SPASMS
  6. REBIF [Suspect]
     Indication: RELAPSING-REMITTING MULTIPLE SCLEROSIS
     Dosage: 22 UG, UNK
     Route: 058
     Dates: start: 20091009, end: 20091001
  7. PROPRANOLOL [Concomitant]
     Indication: ARRHYTHMIA
     Dosage: UNK
  8. PAROXETINE HCL [Concomitant]
     Indication: ANXIETY
  9. IBUPROFEN [Concomitant]
     Dosage: UNK
  10. DICLOFENAC [Suspect]
     Indication: MUSCLE SPASMS
     Dosage: UNK
  11. THIOURACIL [Suspect]
     Indication: HYPERTHYROIDISM
     Dosage: UNK

REACTIONS (7)
  - RELAPSING-REMITTING MULTIPLE SCLEROSIS [None]
  - INFLUENZA LIKE ILLNESS [None]
  - PAIN [None]
  - FEELING ABNORMAL [None]
  - LEUKOPENIA [None]
  - GAIT DISTURBANCE [None]
  - FALL [None]
